FAERS Safety Report 13828392 (Version 2)
Quarter: 2017Q3

REPORT INFORMATION
  Report Type: Spontaneous
  Country: US (occurrence: US)
  Receive Date: 20170803
  Receipt Date: 20170807
  Transmission Date: 20171127
  Serious: No
  Sender: FDA-Public Use
  Company Number: US-PFIZER INC-2017333790

PATIENT
  Sex: Female

DRUGS (1)
  1. ZITHROMAX [Suspect]
     Active Substance: AZITHROMYCIN DIHYDRATE
     Indication: PNEUMONIA
     Dosage: TWO TABLETS ON THE FIRST DAY, THEN ONE TABLET FOR FOUR DAYS

REACTIONS (11)
  - Gastrointestinal disorder [Unknown]
  - Dysphagia [Unknown]
  - Constipation [Unknown]
  - Secretion discharge [Unknown]
  - Dyspepsia [Unknown]
  - Dyspnoea [Unknown]
  - Gastric disorder [Unknown]
  - Bowel movement irregularity [Unknown]
  - Gastritis [Unknown]
  - Pain [Unknown]
  - Gastroenteritis viral [Unknown]
